FAERS Safety Report 5578951-4 (Version None)
Quarter: 2008Q1

REPORT INFORMATION
  Report Type: 
  Country: None (occurrence: None)
  Receive Date: 20080102
  Receipt Date: 20071226
  Transmission Date: 20080703
  Serious: Yes (Hospitalization)
  Sender: FDA-Public Use
  Company Number: JP-ASTRAZENECA-2007AP08139

PATIENT
  Age: 60 Year
  Sex: Male

DRUGS (1)
  1. ANAPEINE INJECTION [Suspect]
     Indication: EPIDURAL ANAESTHESIA
     Dosage: DOSE UNKNOWN
     Route: 008
     Dates: start: 20070501, end: 20070501

REACTIONS (1)
  - PARAPLEGIA [None]
